FAERS Safety Report 9399422 (Version 1)
Quarter: 2013Q3

REPORT INFORMATION
  Report Type: Report from Study
  Country: JP (occurrence: JP)
  Receive Date: 20130715
  Receipt Date: 20130715
  Transmission Date: 20140515
  Serious: Yes (Hospitalization, Other)
  Sender: FDA-Public Use
  Company Number: JP-GENZYME-THYM-1003901

PATIENT
  Age: 63 Year
  Sex: Male
  Weight: 59 kg

DRUGS (17)
  1. THYMOGLOBULIN [Suspect]
     Indication: APLASTIC ANAEMIA
     Dosage: 120 MG, QD
     Route: 065
     Dates: start: 20121210, end: 20121210
  2. THYMOGLOBULIN [Suspect]
     Dosage: 220 MG, QD
     Route: 065
     Dates: start: 20121211, end: 20121214
  3. NEORAL [Suspect]
     Indication: APLASTIC ANAEMIA
     Dosage: UNK
     Route: 065
     Dates: start: 20121112
  4. PRIDOL [Suspect]
     Indication: PROPHYLAXIS
     Dosage: UNK
     Route: 065
     Dates: start: 20121210, end: 20121214
  5. PREDNISOLONE [Suspect]
     Indication: PROPHYLAXIS
     Dosage: UNK
     Route: 065
     Dates: start: 20121221, end: 20130107
  6. PREDNISOLONE [Suspect]
     Indication: COLITIS
     Dosage: UNK
     Route: 065
     Dates: start: 20130522
  7. DAIPHEN [Concomitant]
     Indication: ANTIFUNGAL PROPHYLAXIS
     Dosage: UNK
     Route: 065
     Dates: start: 20121126
  8. VALTREX [Concomitant]
     Indication: ANTIVIRAL PROPHYLAXIS
     Dosage: UNK
     Route: 065
     Dates: start: 20121208
  9. PRIMOBOLAN [Concomitant]
     Indication: APLASTIC ANAEMIA
     Dosage: UNK
     Route: 065
     Dates: start: 20121026
  10. PROMACID [Concomitant]
     Indication: PROPHYLAXIS AGAINST GASTROINTESTINAL ULCER
     Dosage: UNK
     Route: 065
     Dates: start: 20121025
  11. MAGMITT [Concomitant]
     Indication: CONSTIPATION
     Dosage: UNK
     Route: 065
     Dates: start: 20121015
  12. FLUCONAZOLE [Concomitant]
     Indication: ANTIFUNGAL PROPHYLAXIS
     Dosage: UNK
     Route: 065
     Dates: start: 20121217, end: 20130426
  13. FLUCONAZOLE [Concomitant]
     Dosage: UNK
     Route: 065
     Dates: start: 20130604
  14. BIO THREE [Concomitant]
     Indication: DIARRHOEA
     Dosage: UNK
     Route: 065
     Dates: start: 20130112
  15. PHELLOBERIN A [Concomitant]
     Indication: DIARRHOEA
     Dosage: UNK
     Route: 065
     Dates: start: 20130118
  16. CEFCAPENE [Concomitant]
     Indication: PROPHYLAXIS
     Dosage: UNK
     Route: 065
     Dates: start: 20130129, end: 20130204
  17. ELENTAL [Concomitant]
     Indication: COLITIS
     Dosage: UNK
     Route: 065
     Dates: start: 20130509

REACTIONS (13)
  - Stomatitis [Recovered/Resolved]
  - Enterocolitis [Recovered/Resolved]
  - Febrile neutropenia [Recovered/Resolved]
  - Oral fungal infection [Recovered/Resolved]
  - Thrombocytopenia [Recovered/Resolved]
  - Lymphopenia [Recovered/Resolved]
  - C-reactive protein increased [Recovered/Resolved]
  - Weight increased [Recovered/Resolved]
  - Hiccups [Recovered/Resolved]
  - Pyrexia [Recovered/Resolved]
  - Pyrexia [Recovered/Resolved]
  - Pharyngitis [Recovered/Resolved]
  - Cytomegalovirus test positive [Recovered/Resolved]
